FAERS Safety Report 8493186-3 (Version None)
Quarter: 2012Q3

REPORT INFORMATION
  Report Type: 
  Country: None (occurrence: None)
  Receive Date: 20120706
  Receipt Date: 20120627
  Transmission Date: 20120928
  Serious: Yes (Hospitalization, Other)
  Sender: FDA-Public Use
  Company Number: SE-JNJFOC-20120520409

PATIENT
  Sex: Male

DRUGS (4)
  1. AMLODIPINE [Concomitant]
     Route: 065
  2. REMICADE [Suspect]
     Indication: PSORIASIS
     Route: 042
     Dates: start: 20080610, end: 20120111
  3. UNKNOWN MEDICATION [Concomitant]
     Route: 065
  4. LOSARTAN POTASSIUM [Concomitant]
     Route: 065

REACTIONS (6)
  - PNEUMONIA [None]
  - DIZZINESS [None]
  - ORGANISING PNEUMONIA [None]
  - PERONEAL NERVE PALSY [None]
  - BACTERIAL INFECTION [None]
  - URINARY TRACT INFECTION [None]
